FAERS Safety Report 22264689 (Version 1)
Quarter: 2023Q2

REPORT INFORMATION
  Report Type: Other
  Country: None (occurrence: US)
  Receive Date: 20230428
  Receipt Date: 20230428
  Transmission Date: 20230722
  Serious: Yes (Other)
  Sender: FDA-Public Use
  Company Number: US-B.Braun Medical Inc.-2140896

PATIENT
  Age: 69 Year
  Sex: Female

DRUGS (1)
  1. CEFEPIME HYDROCHLORIDE AND DEXTROSE [Suspect]
     Active Substance: CEFEPIME HYDROCHLORIDE
     Indication: Antibiotic therapy

REACTIONS (5)
  - Meningitis aseptic [Unknown]
  - Seizure [Unknown]
  - Hypernatraemia [Unknown]
  - Lactic acidosis [Unknown]
  - Anaemia [Unknown]
